FAERS Safety Report 4672968-X (Version None)
Quarter: 2005Q2

REPORT INFORMATION
  Report Type: 
  Country: None (occurrence: None)
  Receive Date: 20050524
  Receipt Date: 20050519
  Transmission Date: 20051028
  Serious: Yes (Death)
  Sender: FDA-Public Use
  Company Number: DE-MERCK-0505DEU00136

PATIENT

DRUGS (1)
  1. CANCIDAS [Suspect]
     Route: 051

REACTIONS (1)
  - DEATH [None]
